FAERS Safety Report 4618098-4 (Version None)
Quarter: 2005Q1

REPORT INFORMATION
  Report Type: 
  Country: None (occurrence: None)
  Receive Date: 20050322
  Receipt Date: 20050309
  Transmission Date: 20050727
  Serious: Yes (Other)
  Sender: FDA-Public Use
  Company Number: 2005043258

PATIENT
  Age: 45 Year
  Sex: Female
  Weight: 76.2043 kg

DRUGS (5)
  1. DEPO-PROVERA [Suspect]
     Indication: MENORRHAGIA
     Dosage: SEE IMAGE
     Dates: start: 20041101, end: 20041101
  2. DEPO-PROVERA [Suspect]
     Indication: MENORRHAGIA
     Dosage: SEE IMAGE
     Dates: start: 20050217, end: 20050217
  3. LOTEPREDNOL ETABONATE (LOTEPREDNOL ETABONATE) [Concomitant]
  4. MULTIVITAMINS (ASCORBIC ACID, ERGOCALCIFEROL, FOLIC ACID, NICOTINAMIDE [Concomitant]
  5. MONTELUKAST (MONTELUKAST) [Concomitant]

REACTIONS (2)
  - BLOOD GLUCOSE INCREASED [None]
  - HYSTERECTOMY [None]
